FAERS Safety Report 4772898-9 (Version None)
Quarter: 2005Q3

REPORT INFORMATION
  Report Type: 
  Country: None (occurrence: None)
  Receive Date: 20050916
  Receipt Date: 20050905
  Transmission Date: 20060218
  Serious: Yes (Other)
  Sender: FDA-Public Use
  Company Number: 2005123537

PATIENT
  Age: 62 Year
  Sex: Female

DRUGS (2)
  1. SUDAFED (PSEUDOEPHEDRINE) [Suspect]
     Indication: INFLUENZA LIKE ILLNESS
     Dosage: ONE, TWICE A DAY, ORAL
     Route: 048
     Dates: start: 20050729, end: 20050812
  2. SERTRALINE HCL [Concomitant]

REACTIONS (3)
  - DEPRESSIVE SYMPTOM [None]
  - DISEASE RECURRENCE [None]
  - SUICIDAL IDEATION [None]
